APPROVED DRUG PRODUCT: AMOXICILLIN
Active Ingredient: AMOXICILLIN
Strength: 875MG
Dosage Form/Route: TABLET;ORAL
Application: A065059 | Product #002
Applicant: SUN PHARMACEUTICAL INDUSTRIES LTD
Approved: Nov 24, 2000 | RLD: No | RS: No | Type: DISCN